FAERS Safety Report 8999529 (Version 1)
Quarter: 2013Q1

REPORT INFORMATION
  Report Type: Spontaneous
  Country: CH (occurrence: CH)
  Receive Date: 20130103
  Receipt Date: 20130103
  Transmission Date: 20140127
  Serious: Yes (Other)
  Sender: FDA-Public Use
  Company Number: CH-UCBSA-074178

PATIENT
  Age: 67 Year
  Sex: Female

DRUGS (3)
  1. KEPPRA [Suspect]
     Indication: PROPHYLAXIS
     Dates: start: 20121106, end: 20121111
  2. AUGMENTIN [Suspect]
     Indication: PNEUMONITIS
     Dates: start: 20121108, end: 20121108
  3. ROCEPHIN [Suspect]
     Indication: PNEUMONITIS
     Dates: start: 20121108, end: 20121109

REACTIONS (3)
  - Type I hypersensitivity [Recovered/Resolved]
  - Rash [Recovered/Resolved]
  - Erythema [Recovered/Resolved]
